FAERS Safety Report 17577345 (Version 2)
Quarter: 2020Q2

REPORT INFORMATION
  Report Type: Spontaneous
  Country: US (occurrence: US)
  Receive Date: 20200324
  Receipt Date: 20200415
  Transmission Date: 20200713
  Serious: No
  Sender: FDA-Public Use
  Company Number: US-LUNDBECK-DKLU3013745

PATIENT
  Age: 76 Year
  Sex: Female

DRUGS (2)
  1. NORTHERA [Suspect]
     Active Substance: DROXIDOPA
     Indication: ORTHOSTATIC HYPOTENSION
  2. NORTHERA [Suspect]
     Active Substance: DROXIDOPA
     Indication: AUTONOMIC NEUROPATHY
     Dosage: SCHEDULE C
     Route: 048
     Dates: start: 202002

REACTIONS (2)
  - Drug ineffective [Recovered/Resolved]
  - Hypotension [Unknown]
